FAERS Safety Report 7062910 (Version 2)
Quarter: 2020Q1

REPORT INFORMATION
  Report Type: Spontaneous
  Country: US (occurrence: US)
  Receive Date: 20090724
  Receipt Date: 20200303
  Transmission Date: 20200409
  Serious: Yes (Death, Other)
  Sender: FDA-Public Use
  Company Number: US-PURDUE-USA-2009-0039098

PATIENT
  Age: 51 Year
  Sex: Female

DRUGS (1)
  1. OXYCONTIN [Suspect]
     Active Substance: OXYCODONE HYDROCHLORIDE
     Indication: ANALGESIC THERAPY
     Dosage: UNK
     Route: 048
     Dates: start: 19991013, end: 20010101

REACTIONS (13)
  - Pneumonia [Fatal]
  - Depression [Unknown]
  - Pain [Unknown]
  - Abdominal discomfort [Unknown]
  - Drug dependence [Unknown]
  - Bulimia nervosa [Unknown]
  - Vomiting [Unknown]
  - Drug abuse [Unknown]
  - Drug withdrawal syndrome [Unknown]
  - Malnutrition [Fatal]
  - Overdose [Unknown]
  - Sepsis [Fatal]
  - Anxiety [Unknown]

NARRATIVE: CASE EVENT DATE: 20010215
